FAERS Safety Report 7815007-1 (Version None)
Quarter: 2011Q4

REPORT INFORMATION
  Report Type: 
  Country: None (occurrence: None)
  Receive Date: 20111014
  Receipt Date: 20111005
  Transmission Date: 20120403
  Serious: Yes (Death)
  Sender: FDA-Public Use
  Company Number: GR-GLAXOSMITHKLINE-B0752853A

PATIENT
  Sex: Male
  Weight: 59 kg

DRUGS (5)
  1. PLENDIL [Concomitant]
     Indication: HYPERTENSION
     Dosage: 5MG PER DAY
     Route: 048
     Dates: start: 20040101, end: 20110910
  2. FERROUS SULFATE TAB [Concomitant]
     Indication: ANAEMIA
     Route: 048
     Dates: start: 20110908, end: 20110929
  3. LAPATINIB [Suspect]
     Indication: METASTASES TO CENTRAL NERVOUS SYSTEM
     Dosage: 1500MG PER DAY
     Route: 048
     Dates: start: 20110912, end: 20110928
  4. DEXAMETHASONE [Concomitant]
     Indication: BRAIN OEDEMA
     Dosage: 30ML PER DAY
     Route: 048
     Dates: start: 20110912, end: 20110929
  5. DIOVAN HCT [Concomitant]
     Indication: HYPERTENSION
     Route: 048
     Dates: start: 20040101, end: 20110910

REACTIONS (1)
  - SUDDEN DEATH [None]
